FAERS Safety Report 6410637-6 (Version None)
Quarter: 2009Q4

REPORT INFORMATION
  Report Type: 
  Country: None (occurrence: None)
  Receive Date: 20091022
  Receipt Date: 20091015
  Transmission Date: 20100525
  Serious: Yes (Hospitalization)
  Sender: FDA-Public Use
  Company Number: US-BIOGENIDEC-2006BI013489

PATIENT
  Age: 59 Year
  Sex: Female

DRUGS (12)
  1. TYSABRI [Suspect]
     Indication: MULTIPLE SCLEROSIS
     Route: 042
     Dates: start: 20060920, end: 20070321
  2. TYSABRI [Suspect]
     Route: 042
     Dates: end: 20050201
  3. TRAZODONE [Concomitant]
  4. PROMETHAZINE [Concomitant]
  5. LORAZEPAM [Concomitant]
  6. METHOCARBAMOL [Concomitant]
  7. LORTAB [Concomitant]
  8. CYMBALTA [Concomitant]
  9. AMANTADINE HCL [Concomitant]
  10. KLOR-CON [Concomitant]
  11. NEXIUM [Concomitant]
  12. MAGNESIUM [Concomitant]

REACTIONS (6)
  - CHEST PAIN [None]
  - DYSPNOEA [None]
  - HYPERSENSITIVITY [None]
  - MUSCLE SPASMS [None]
  - SWELLING [None]
  - URTICARIA [None]
